FAERS Safety Report 6221131-X (Version None)
Quarter: 2009Q2

REPORT INFORMATION
  Report Type: 
  Country: None (occurrence: None)
  Receive Date: 20090608
  Receipt Date: 20090602
  Transmission Date: 20091009
  Serious: Yes (Hospitalization)
  Sender: FDA-Public Use
  Company Number: 2009AL003648

PATIENT
  Age: 15 Year
  Sex: Male

DRUGS (1)
  1. PHENYTOIN [Suspect]
     Indication: OVERDOSE
     Dosage: 1.5 G

REACTIONS (6)
  - AGITATION [None]
  - ATAXIA [None]
  - DRUG TOXICITY [None]
  - DYSARTHRIA [None]
  - GRAND MAL CONVULSION [None]
  - INTENTIONAL DRUG MISUSE [None]
